FAERS Safety Report 5297960-6 (Version None)
Quarter: 2007Q2

REPORT INFORMATION
  Report Type: 
  Country: None (occurrence: None)
  Receive Date: 20070416
  Receipt Date: 20070412
  Transmission Date: 20071010
  Serious: Yes (Other)
  Sender: FDA-Public Use
  Company Number: 2007-536

PATIENT
  Sex: Female

DRUGS (1)
  1. CEFUHEXAL [Suspect]
     Dosage: 500MG UNKNOWN
     Route: 048
     Dates: start: 20070220, end: 20070226

REACTIONS (3)
  - ABORTION [None]
  - DRUG EXPOSURE DURING PREGNANCY [None]
  - PREGNANCY [None]
